FAERS Safety Report 6491758-9 (Version None)
Quarter: 2009Q4

REPORT INFORMATION
  Report Type: 
  Country: None (occurrence: None)
  Receive Date: 20091210
  Receipt Date: 20091130
  Transmission Date: 20100525
  Serious: Yes (Hospitalization)
  Sender: FDA-Public Use
  Company Number: 2009029385

PATIENT
  Age: 48 Year
  Sex: Female

DRUGS (12)
  1. ACTIQ [Suspect]
     Indication: CONNECTIVE TISSUE DISORDER
     Dosage: (1600 MCG, 10-12 LOZENGES/DAY (16000MCG-19200MCG)), BU
     Route: 002
     Dates: start: 20020101, end: 20030511
  2. ACTIQ [Suspect]
     Indication: CONNECTIVE TISSUE DISORDER
     Dosage: (1600 MCG, 10-12 LOZENGES/DAY (16000MCG-19200MCG)), BU
     Route: 002
     Dates: end: 20091129
  3. METHADONE (METHADONE) [Concomitant]
  4. MORPHINE SULFATE INJ [Concomitant]
  5. FIORICET [Concomitant]
  6. HYDROCORTONE [Concomitant]
  7. PLAQUENIL [Concomitant]
  8. CYTOTEC [Concomitant]
  9. DIAZEPAM [Concomitant]
  10. LYRICA [Concomitant]
  11. SOMA [Concomitant]
  12. AMITRIPTYLINE HYDROCHLORIDE [Concomitant]

REACTIONS (11)
  - APHASIA [None]
  - CONDITION AGGRAVATED [None]
  - DECREASED APPETITE [None]
  - DEHYDRATION [None]
  - DRUG PRESCRIBING ERROR [None]
  - DRUG WITHDRAWAL SYNDROME [None]
  - DUODENAL ULCER [None]
  - FATIGUE [None]
  - HALLUCINATION [None]
  - NAUSEA [None]
  - PLEURISY [None]
